FAERS Safety Report 25427658 (Version 2)
Quarter: 2025Q3

REPORT INFORMATION
  Report Type: Spontaneous
  Country: US (occurrence: US)
  Receive Date: 20250612
  Receipt Date: 20250722
  Transmission Date: 20251021
  Serious: No
  Sender: Vantive US Healthcare
  Company Number: US-VANTIVE-2025VAN002598

PATIENT
  Sex: Male
  Weight: 99.32 kg

DRUGS (1)
  1. DIANEAL LOW CALCIUM WITH DEXTROSE [Suspect]
     Active Substance: CALCIUM CHLORIDE\DEXTROSE\MAGNESIUM CHLORIDE\SODIUM CHLORIDE\SODIUM LACTATE
     Indication: End stage renal disease
     Route: 033
     Dates: start: 202505, end: 2025

REACTIONS (8)
  - Illness [Unknown]
  - Feeding disorder [Unknown]
  - Weight decreased [Recovered/Resolved]
  - Nausea [Recovered/Resolved]
  - Vomiting [Recovered/Resolved]
  - Diarrhoea [Recovered/Resolved]
  - Abdominal pain upper [Unknown]
  - Muscle spasms [Unknown]

NARRATIVE: CASE EVENT DATE: 20250601
